FAERS Safety Report 6353537-2 (Version None)
Quarter: 2009Q3

REPORT INFORMATION
  Report Type: 
  Country: None (occurrence: None)
  Receive Date: 20090912
  Receipt Date: 20090622
  Transmission Date: 20100115
  Serious: No
  Sender: FDA-Public Use
  Company Number: US-ABBOTT-08P-163-0461718-00

PATIENT
  Sex: Male
  Weight: 99.88 kg

DRUGS (17)
  1. HUMIRA [Suspect]
     Indication: ANKYLOSING SPONDYLITIS
     Route: 050
     Dates: start: 20080401
  2. FOR TUBERCULOSIS [Concomitant]
     Indication: TUBERCULOSIS
     Route: 048
     Dates: start: 20080301
  3. PREDNISONE [Concomitant]
     Indication: ANKYLOSING SPONDYLITIS
     Route: 048
     Dates: start: 20070101
  4. ZOLPIDEM TARTRATE [Concomitant]
     Indication: INSOMNIA
     Route: 048
  5. DULOXETINE HYDROCHLORIDE [Concomitant]
     Indication: PAIN
     Route: 048
     Dates: start: 20070101
  6. DULOXETINE HYDROCHLORIDE [Concomitant]
     Indication: DEPRESSION
  7. HYDROCHLOROTHIAZIDE [Concomitant]
     Indication: BLOOD PRESSURE
     Route: 048
     Dates: start: 20000101
  8. NAPROXEN [Concomitant]
     Indication: ANKYLOSING SPONDYLITIS
     Route: 048
     Dates: start: 20070101
  9. ATENOLOL [Concomitant]
     Indication: HYPERTENSION
     Route: 048
     Dates: start: 20000101
  10. PRAMIPEXOLE DIHYDROCHLORIDE [Concomitant]
     Indication: RESTLESS LEGS SYNDROME
     Route: 048
     Dates: start: 20030101
  11. GABAPENTIN [Concomitant]
     Indication: NERVE INJURY
     Dosage: (5) 300MILLIGRAMS
     Route: 048
     Dates: start: 20000101
  12. CYCLOBENZAPRINE HCL [Concomitant]
     Indication: MUSCLE SPASMS
     Route: 048
     Dates: start: 20000101
  13. TOPIRAMATE [Concomitant]
     Indication: TREMOR
     Route: 048
     Dates: start: 20030101
  14. TYLOX [Concomitant]
     Indication: PAIN
     Route: 048
  15. OMEPRAZOLE MAGNESIUM [Concomitant]
     Indication: GASTRIC DISORDER
     Route: 048
     Dates: start: 20070601
  16. GAS EX [Concomitant]
     Indication: FLATULENCE
     Route: 048
  17. CLINDAMYCIN [Concomitant]
     Indication: SKIN DISORDER
     Dosage: 1% OINTMENT
     Route: 061

REACTIONS (4)
  - DRUG DELIVERY SYSTEM MALFUNCTION [None]
  - DRUG INEFFECTIVE [None]
  - INCORRECT DOSE ADMINISTERED [None]
  - WRONG TECHNIQUE IN DRUG USAGE PROCESS [None]
